FAERS Safety Report 10216490 (Version 1)
Quarter: 2014Q2

REPORT INFORMATION
  Report Type: Spontaneous
  Country: US (occurrence: US)
  Receive Date: 20140604
  Receipt Date: 20140604
  Transmission Date: 20141212
  Serious: No
  Sender: FDA-Public Use
  Company Number: US-PFIZER INC-2014150576

PATIENT
  Age: 45 Year
  Sex: Female

DRUGS (5)
  1. LYRICA [Suspect]
     Indication: BACK PAIN
     Dosage: UNK
     Dates: start: 20090527, end: 20090923
  2. MORPHINE SULFATE [Suspect]
     Indication: BACK PAIN
     Dosage: UNK
     Dates: start: 20090527
  3. SOMA [Suspect]
     Indication: BACK PAIN
     Dosage: UNK
     Dates: start: 20090527
  4. NORCO [Suspect]
     Indication: BACK PAIN
     Dosage: UNK
     Dates: start: 20090527
  5. HYDROCODONE [Suspect]
     Indication: BACK PAIN
     Dosage: UNK
     Dates: start: 20090527

REACTIONS (3)
  - Insomnia [Unknown]
  - Depression [Unknown]
  - Anxiety [Unknown]
